FAERS Safety Report 24018584 (Version 1)
Quarter: 2024Q2

REPORT INFORMATION
  Report Type: Report from Study
  Country: CO (occurrence: CO)
  Receive Date: 20240627
  Receipt Date: 20240627
  Transmission Date: 20240716
  Serious: Yes (Hospitalization)
  Sender: FDA-Public Use
  Company Number: CO-ASTELLAS-2024US018106

PATIENT
  Age: 68 Year
  Sex: Male
  Weight: 57 kg

DRUGS (2)
  1. TACROLIMUS [Suspect]
     Active Substance: TACROLIMUS
     Indication: Liver transplant
     Dosage: 4 MG, ONCE DAILY (1 MG: 4 CAPSULES)
     Route: 048
     Dates: start: 20170818
  2. TACROLIMUS [Suspect]
     Active Substance: TACROLIMUS
     Dosage: 2 MG, ONCE DAILY (1 MG: 2 CAPSULES)
     Route: 048

REACTIONS (3)
  - Hepatic mass [Unknown]
  - Decreased appetite [Unknown]
  - Underweight [Unknown]
